FAERS Safety Report 8484381-8 (Version None)
Quarter: 2012Q3

REPORT INFORMATION
  Report Type: 
  Country: None (occurrence: None)
  Receive Date: 20120703
  Receipt Date: 20120627
  Transmission Date: 20120928
  Serious: Yes (Other)
  Sender: FDA-Public Use
  Company Number: PHHY2012JP056491

PATIENT
  Sex: Male
  Weight: 47 kg

DRUGS (9)
  1. TASIGNA [Suspect]
     Dosage: 800 MG, DAILY
     Route: 048
     Dates: start: 20111005
  2. LANSOPRAZOLE [Concomitant]
     Dates: start: 20091224, end: 20101223
  3. TRANSAMINE CAP [Concomitant]
     Indication: PANCYTOPENIA
     Dates: start: 20091225, end: 20101216
  4. OMEPRAZOLE [Concomitant]
     Dates: start: 20111221
  5. TASIGNA [Suspect]
     Indication: CHRONIC MYELOID LEUKAEMIA
     Dosage: 800 MG, DAILY
     Route: 048
     Dates: start: 20091224, end: 20110322
  6. TASIGNA [Suspect]
     Dosage: 600 MG, DAILY
     Route: 048
     Dates: start: 20110706, end: 20110802
  7. TASIGNA [Suspect]
     Dosage: 400 MG, DAILY
     Route: 048
     Dates: start: 20110803, end: 20110906
  8. TASIGNA [Suspect]
     Dosage: 600 MG, DAILY
     Route: 048
     Dates: start: 20110907, end: 20111004
  9. TASIGNA [Suspect]
     Dosage: 400 MG, DAILY
     Route: 048
     Dates: start: 20110330, end: 20110705

REACTIONS (2)
  - PRURITUS [None]
  - DRUG ERUPTION [None]
